FAERS Safety Report 7872198-4 (Version None)
Quarter: 2011Q4

REPORT INFORMATION
  Report Type: 
  Country: None (occurrence: None)
  Receive Date: 20111029
  Receipt Date: 20110316
  Transmission Date: 20120403
  Serious: No
  Sender: FDA-Public Use
  Company Number: US-AMGEN-USASP2011014494

PATIENT
  Age: 57 Year
  Sex: Female

DRUGS (1)
  1. ENBREL [Suspect]
     Indication: RHEUMATOID ARTHRITIS
     Dosage: 50 MG, QWK
     Dates: start: 20110228

REACTIONS (5)
  - JOINT RANGE OF MOTION DECREASED [None]
  - DRUG ADMINISTRATION ERROR [None]
  - INJECTION SITE SWELLING [None]
  - GAIT DISTURBANCE [None]
  - DRUG INEFFECTIVE [None]
